FAERS Safety Report 11856245 (Version 1)
Quarter: 2015Q4

REPORT INFORMATION
  Report Type: Spontaneous
  Country: PE (occurrence: PE)
  Receive Date: 20151221
  Receipt Date: 20151221
  Transmission Date: 20160305
  Serious: Yes (Other)
  Sender: FDA-Public Use
  Company Number: PE-PFIZER INC-2015335259

PATIENT
  Age: 79 Year
  Sex: Male

DRUGS (2)
  1. CELEBREX [Suspect]
     Active Substance: CELECOXIB
     Indication: RHEUMATOID ARTHRITIS
     Dosage: 1 DF, 1X/DAY
     Dates: end: 201511
  2. CELEBREX [Suspect]
     Active Substance: CELECOXIB
     Indication: PAIN
     Dosage: 1 DF, AS NEEDED

REACTIONS (2)
  - Cataract [Unknown]
  - Glaucoma [Unknown]
